FAERS Safety Report 11388248 (Version 1)
Quarter: 2015Q3

REPORT INFORMATION
  Report Type: Spontaneous
  Country: US (occurrence: US)
  Receive Date: 20150817
  Receipt Date: 20150817
  Transmission Date: 20151125
  Serious: Yes (Other)
  Sender: FDA-Public Use
  Company Number: US-BAYER-2015-398341

PATIENT
  Age: 53 Year
  Sex: Female

DRUGS (1)
  1. BETASERON [Suspect]
     Active Substance: INTERFERON BETA-1B
     Indication: MULTIPLE SCLEROSIS
     Dosage: 0.25 MG, QOD
     Route: 058
     Dates: start: 200104

REACTIONS (10)
  - Multiple sclerosis [None]
  - Visual field defect [None]
  - Multiple sclerosis relapse [None]
  - Depression [None]
  - Burning sensation [None]
  - Injection site erythema [None]
  - Fatigue [None]
  - Balance disorder [None]
  - Hypoaesthesia [None]
  - Back pain [None]

NARRATIVE: CASE EVENT DATE: 200104
